FAERS Safety Report 25010761 (Version 3)
Quarter: 2025Q3

REPORT INFORMATION
  Report Type: Spontaneous
  Country: US (occurrence: US)
  Receive Date: 20250225
  Receipt Date: 20250820
  Transmission Date: 20251020
  Serious: Yes (Hospitalization)
  Sender: BIOGEN
  Company Number: US-BIOGEN-2025BI01300026

PATIENT
  Sex: Male

DRUGS (4)
  1. SKYCLARYS [Interacting]
     Active Substance: OMAVELOXOLONE
     Indication: Friedreich^s ataxia
     Route: 050
  2. SKYCLARYS [Interacting]
     Active Substance: OMAVELOXOLONE
     Route: 050
     Dates: start: 20241213
  3. SKYCLARYS [Interacting]
     Active Substance: OMAVELOXOLONE
     Route: 050
  4. TACROLIMUS [Interacting]
     Active Substance: TACROLIMUS
     Indication: Product used for unknown indication
     Route: 050

REACTIONS (4)
  - Cardiomyopathy [Unknown]
  - Atrial fibrillation [Unknown]
  - Cardiac failure [Unknown]
  - Drug interaction [Unknown]
